FAERS Safety Report 4989600-8 (Version None)
Quarter: 2006Q2

REPORT INFORMATION
  Report Type: 
  Country: None (occurrence: None)
  Receive Date: 20060502
  Receipt Date: 20060317
  Transmission Date: 20061013
  Serious: Yes (Hospitalization)
  Sender: FDA-Public Use
  Company Number: US-MERCK-0603USA03210

PATIENT
  Age: 81 Year
  Sex: Female
  Weight: 75 kg

DRUGS (1)
  1. VIOXX [Suspect]
     Indication: ARTHRITIS
     Route: 048
     Dates: start: 20010601, end: 20041001

REACTIONS (12)
  - ABDOMINAL PAIN UPPER [None]
  - ACUTE CORONARY SYNDROME [None]
  - ANXIETY [None]
  - CATARACT [None]
  - CHEST PAIN [None]
  - FREQUENT BOWEL MOVEMENTS [None]
  - HYPERLIPIDAEMIA [None]
  - HYPERTENSION [None]
  - MICTURITION URGENCY [None]
  - MYOCARDIAL INFARCTION [None]
  - OSTEOPOROSIS [None]
  - RENAL FAILURE CHRONIC [None]
